FAERS Safety Report 7255417-7 (Version None)
Quarter: 2011Q1

REPORT INFORMATION
  Report Type: 
  Country: None (occurrence: None)
  Receive Date: 20110129
  Receipt Date: 20100413
  Transmission Date: 20110831
  Serious: No
  Sender: FDA-Public Use
  Company Number: US-ABBOTT-10P-163-0637981-00

PATIENT
  Sex: Female
  Weight: 92.162 kg

DRUGS (1)
  1. HUMIRA [Suspect]
     Indication: PSORIASIS
     Dosage: DAY 1
     Dates: start: 20081112, end: 20100422

REACTIONS (6)
  - HYPERHIDROSIS [None]
  - FEELING COLD [None]
  - LOSS OF CONSCIOUSNESS [None]
  - OXYGEN SATURATION DECREASED [None]
  - HEAD INJURY [None]
  - COUGH [None]
